FAERS Safety Report 8924822 (Version 2)
Quarter: 2013Q1

REPORT INFORMATION
  Report Type: Spontaneous
  Country: US (occurrence: US)
  Receive Date: 20121126
  Receipt Date: 20130117
  Transmission Date: 20140127
  Serious: Yes (Other)
  Sender: FDA-Public Use
  Company Number: US-PFIZER INC-2012293657

PATIENT
  Age: 47 Year
  Sex: Female
  Weight: 61.22 kg

DRUGS (5)
  1. LYRICA [Suspect]
     Indication: PAIN MANAGEMENT
     Dosage: 75 MG, DAILY
     Dates: start: 20121114, end: 201211
  2. CELEBREX [Suspect]
     Indication: ARTHRALGIA
     Dosage: 200 MG, DAILY
     Dates: start: 20121114, end: 20121115
  3. PERCOCET [Suspect]
     Indication: PAIN MANAGEMENT
     Dosage: 5 MG/325 MG, AS NEEDED
     Dates: start: 2012
  4. PERCOCET [Suspect]
     Indication: CAESAREAN SECTION
  5. PERCOCET [Suspect]
     Indication: SHOULDER OPERATION

REACTIONS (10)
  - Abasia [Unknown]
  - Drug ineffective [Unknown]
  - Breast discomfort [Not Recovered/Not Resolved]
  - Breast swelling [Not Recovered/Not Resolved]
  - Breast induration [Not Recovered/Not Resolved]
  - Breast mass [Not Recovered/Not Resolved]
  - Breast pain [Not Recovered/Not Resolved]
  - Insomnia [Not Recovered/Not Resolved]
  - Paraesthesia [Recovered/Resolved]
  - Breast tenderness [Unknown]
